FAERS Safety Report 8972866 (Version 1)
Quarter: 2012Q4

REPORT INFORMATION
  Report Type: 
  Country: JP (occurrence: JP)
  Receive Date: 20121219
  Receipt Date: 20121219
  Transmission Date: 20130627
  Serious: Yes (Life-Threatening, Other)
  Sender: FDA-Public Use
  Company Number: JP-ASTELLAS-2012JP011134

PATIENT
  Age: 65 Year
  Sex: Female
  Weight: 33.5 kg

DRUGS (12)
  1. PROGRAF [Suspect]
     Indication: RHEUMATOID ARTHRITIS
     Dosage: 0.5 mg, Unknown/D
     Route: 048
     Dates: start: 20121103, end: 20121120
  2. PROGRAF [Interacting]
     Dosage: 1 mg, Unknown/D
     Route: 048
     Dates: start: 20110128, end: 20121026
  3. CLARITHROMYCIN [Interacting]
     Dosage: UNK
     Route: 048
     Dates: start: 20120920, end: 20120926
  4. CLARITHROMYCIN [Interacting]
     Dosage: UNK
     Route: 048
     Dates: start: 20121017, end: 20121023
  5. RHEUMATREX                         /00113801/ [Suspect]
     Indication: RHEUMATOID ARTHRITIS
     Dosage: 8 mg, Weekly
     Route: 048
     Dates: start: 20091218, end: 20121121
  6. PREDNISOLONE [Concomitant]
     Indication: RHEUMATOID ARTHRITIS
     Dosage: 1 mg, UID/QD
     Route: 048
     Dates: start: 20110709, end: 20120830
  7. FOLIAMIN [Concomitant]
     Indication: PROPHYLAXIS
     Dosage: UNK mg, Unknown/D
     Route: 048
     Dates: start: 20110128, end: 20121121
  8. FOSAMAC [Concomitant]
     Indication: OSTEOPOROSIS
     Dosage: 35 mg, Weekly
     Route: 048
     Dates: start: 20090902
  9. ONEALFA [Concomitant]
     Indication: OSTEOPOROSIS
     Dosage: 0.25 ug, Unknown/D
     Route: 048
     Dates: start: 20090902
  10. TAKEPRON [Concomitant]
     Dosage: 15 mg, Unknown/D
     Route: 048
     Dates: start: 20100618
  11. LENDORMIN [Concomitant]
     Dosage: 0.25 mg, UID/QD
     Route: 048
     Dates: start: 20090903
  12. STROCAIN                           /00130301/ [Concomitant]
     Dosage: 10 mg, Weekly
     Route: 048
     Dates: start: 20100806, end: 20121121

REACTIONS (3)
  - Intentional drug misuse [Unknown]
  - Pneumocystis jiroveci pneumonia [Recovered/Resolved]
  - Drug interaction [Recovered/Resolved]
